FAERS Safety Report 5695732-1 (Version None)
Quarter: 2008Q2

REPORT INFORMATION
  Report Type: 
  Country: None (occurrence: None)
  Receive Date: 20080407
  Receipt Date: 20080407
  Transmission Date: 20081010
  Serious: Yes (Death)
  Sender: FDA-Public Use
  Company Number: None

PATIENT
  Age: 50 Year
  Sex: Female
  Weight: 72.5755 kg

DRUGS (20)
  1. HEPARIN LOCK-FLUSH [Suspect]
     Indication: INDWELLING CATHETER MANAGEMENT
     Dosage: 300 UNITS OR 3ML THREE TIMES DAILY IV
     Route: 042
     Dates: start: 20080319, end: 20080330
  2. ZYVOX [Concomitant]
  3. AZTREONAM [Concomitant]
  4. AMBIEN [Concomitant]
  5. ALBUTEROL SULFATE [Concomitant]
  6. IPRATROPIUM BROMIDE [Concomitant]
  7. ALLOPURINOL [Concomitant]
  8. DOXEPIN HCL [Concomitant]
  9. LOVENOX [Concomitant]
  10. NEXIUM [Concomitant]
  11. ZETIA [Concomitant]
  12. MUCINEX [Concomitant]
  13. KEPPRA [Concomitant]
  14. ACETAMINOPHEN [Concomitant]
  15. ACTOS [Concomitant]
  16. K-DUR [Concomitant]
  17. PREDNISONE [Concomitant]
  18. ZOCOR [Concomitant]
  19. THEOPHYLLINE [Concomitant]
  20. SODIUM CHLORIDE 0.9% [Concomitant]

REACTIONS (3)
  - BREATH SOUNDS ABSENT [None]
  - POOR QUALITY DRUG ADMINISTERED [None]
  - YELLOW SKIN [None]
